FAERS Safety Report 7334827-3 (Version None)
Quarter: 2011Q1

REPORT INFORMATION
  Report Type: 
  Country: None (occurrence: None)
  Receive Date: 20110307
  Receipt Date: 20110301
  Transmission Date: 20110831
  Serious: Yes (Other)
  Sender: FDA-Public Use
  Company Number: BR-SANOFI-AVENTIS-2011SA003813

PATIENT
  Age: 37 Year
  Sex: Male
  Weight: 86 kg

DRUGS (10)
  1. PANTOPRAZOLE [Concomitant]
     Indication: GASTRIC DISORDER
     Route: 048
     Dates: start: 20100101
  2. FUROSEMIDE [Concomitant]
     Indication: FLUID RETENTION
     Route: 048
     Dates: start: 20100101
  3. AMLODIPINE BESILATE [Concomitant]
     Indication: HYPERTENSION
     Route: 048
     Dates: start: 20090101
  4. ATORVASTATIN CALCIUM [Concomitant]
     Route: 048
     Dates: start: 20100101
  5. DAFLON [Concomitant]
     Indication: PROMOTION OF PERIPHERAL CIRCULATION
     Route: 048
     Dates: start: 20100101
  6. LANTUS [Suspect]
     Indication: TYPE 1 DIABETES MELLITUS
     Route: 058
  7. OLMETEC [Concomitant]
     Indication: HYPERTENSION
     Route: 048
     Dates: start: 20090101
  8. OPTIPEN [Suspect]
  9. HUMALOG [Concomitant]
     Indication: TYPE 1 DIABETES MELLITUS
     Dosage: BEFORE LUNCH AND BREAKFAST
     Route: 058
     Dates: start: 20100801
  10. CIPROFIBRATE [Concomitant]
     Route: 048
     Dates: start: 20100101

REACTIONS (5)
  - DIABETIC RETINOPATHY [None]
  - GLAUCOMA [None]
  - BLINDNESS UNILATERAL [None]
  - CATARACT [None]
  - UNEVALUABLE EVENT [None]
